FAERS Safety Report 18742187 (Version 1)
Quarter: 2021Q1

REPORT INFORMATION
  Report Type: Spontaneous
  Country: FR (occurrence: FR)
  Receive Date: 20210114
  Receipt Date: 20210114
  Transmission Date: 20210419
  Serious: Yes (Other)
  Sender: FDA-Public Use
  Company Number: FR-PFIZER INC-2021016430

PATIENT
  Sex: Female
  Weight: 72 kg

DRUGS (1)
  1. VYNDAQEL [Suspect]
     Active Substance: TAFAMIDIS MEGLUMINE
     Dosage: 20 MG, DAILY
     Dates: end: 20201208

REACTIONS (4)
  - N-terminal prohormone brain natriuretic peptide increased [Unknown]
  - Cardiac failure chronic [Unknown]
  - Troponin I increased [Unknown]
  - Disease progression [Unknown]

NARRATIVE: CASE EVENT DATE: 20201206
